FAERS Safety Report 5096360-1 (Version None)
Quarter: 2006Q3

REPORT INFORMATION
  Report Type: 
  Country: None (occurrence: None)
  Receive Date: 20060728
  Receipt Date: 20060501
  Transmission Date: 20061208
  Serious: No
  Sender: FDA-Public Use
  Company Number: COT_0531_2006

PATIENT
  Age: 67 Year
  Sex: Female
  Weight: 77.5651 kg

DRUGS (10)
  1. VENTAVIS [Suspect]
     Indication: PULMONARY HYPERTENSION
     Dosage: 5 MCG 6XD IH
     Dates: start: 20060411
  2. AMLODIPINE BESYLATE [Concomitant]
  3. TRACLEER [Concomitant]
  4. CALCIUM CARBONATE [Concomitant]
  5. CALCITRIOL [Concomitant]
  6. FLONASE [Concomitant]
  7. PREVACID [Concomitant]
  8. SILDENAFIL [Concomitant]
  9. ROBITUSSIN A-C [Concomitant]
  10. WARFARIN SODIUM [Concomitant]

REACTIONS (2)
  - FATIGUE [None]
  - SOMNOLENCE [None]
